FAERS Safety Report 19681598 (Version 1)
Quarter: 2021Q3

REPORT INFORMATION
  Report Type: Spontaneous
  Country: US (occurrence: US)
  Receive Date: 20210810
  Receipt Date: 20210810
  Transmission Date: 20211014
  Serious: No
  Sender: FDA-Public Use
  Company Number: US-JNJFOC-20210763928

PATIENT
  Sex: Male

DRUGS (1)
  1. MENS ROGAINE EXTRA STRENGTH [Suspect]
     Active Substance: MINOXIDIL
     Indication: ALOPECIA
     Dosage: DOSE: 1/2 CAP AS DIRECTED ON THE BOX?FREQUENCY: SOMETIMES ONCE A DAY AND SOMETIMES WOULD NOT DO IT
     Route: 061
     Dates: start: 20210505

REACTIONS (1)
  - Application site dryness [Unknown]

NARRATIVE: CASE EVENT DATE: 2021
